FAERS Safety Report 8227840-5 (Version None)
Quarter: 2012Q1

REPORT INFORMATION
  Report Type: 
  Country: None (occurrence: None)
  Receive Date: 20120322
  Receipt Date: 20120308
  Transmission Date: 20120608
  Serious: Yes (Disabling, Other)
  Sender: FDA-Public Use
  Company Number: US-ROCHE-1018902

PATIENT
  Sex: Male

DRUGS (5)
  1. AVASTIN [Suspect]
     Indication: RETINAL VEIN OCCLUSION
     Route: 050
  2. SYNTHROID [Concomitant]
     Route: 048
  3. STARLIX [Concomitant]
     Route: 048
  4. LIPITOR [Concomitant]
     Route: 048
  5. AVASTIN [Suspect]
     Indication: MACULAR OEDEMA

REACTIONS (4)
  - TRANSMISSION OF AN INFECTIOUS AGENT VIA A MEDICINAL PRODUCT [None]
  - BLINDNESS [None]
  - PRODUCT QUALITY ISSUE [None]
  - ENDOPHTHALMITIS [None]
